FAERS Safety Report 7978563-9 (Version None)
Quarter: 2011Q4

REPORT INFORMATION
  Report Type: 
  Country: None (occurrence: None)
  Receive Date: 20111214
  Receipt Date: 20111213
  Transmission Date: 20120403
  Serious: No
  Sender: FDA-Public Use
  Company Number: JP-JNJFOC-20111105159

PATIENT
  Age: 16 Year
  Sex: Male

DRUGS (7)
  1. OVULANZE [Concomitant]
     Route: 048
  2. FENTANYL [Suspect]
     Indication: CANCER PAIN
     Route: 062
     Dates: start: 20111031, end: 20111106
  3. MORPHINE [Concomitant]
     Indication: ANALGESIC THERAPY
     Route: 048
  4. LYRICA [Concomitant]
     Indication: HYPOAESTHESIA
     Route: 048
  5. LENDORMIN [Concomitant]
     Indication: INSOMNIA
     Route: 048
  6. LOXONIN [Concomitant]
  7. MAGMITT [Concomitant]
     Indication: PROPHYLAXIS
     Route: 048

REACTIONS (2)
  - FEELING HOT [None]
  - HOT FLUSH [None]
